FAERS Safety Report 8074391-7 (Version None)
Quarter: 2012Q1

REPORT INFORMATION
  Report Type: 
  Country: None (occurrence: None)
  Receive Date: 20120126
  Receipt Date: 20120123
  Transmission Date: 20120608
  Serious: Yes (Hospitalization)
  Sender: FDA-Public Use
  Company Number: BR-GLAXOSMITHKLINE-A0962996A

PATIENT
  Age: 40 Year

DRUGS (1)
  1. ARIXTRA [Suspect]
     Dosage: 2.5MGD PER DAY
     Route: 042

REACTIONS (2)
  - HAEMORRHAGIC STROKE [None]
  - ISCHAEMIC STROKE [None]
